FAERS Safety Report 7558192-1 (Version None)
Quarter: 2011Q2

REPORT INFORMATION
  Report Type: 
  Country: None (occurrence: None)
  Receive Date: 20110620
  Receipt Date: 20110608
  Transmission Date: 20111010
  Serious: Yes (Death, Other)
  Sender: FDA-Public Use
  Company Number: CH-CELGENEUS-151-21880-11043190

PATIENT
  Sex: Male

DRUGS (10)
  1. DEXAMETHASONE [Concomitant]
     Indication: MULTIPLE MYELOMA
     Route: 065
     Dates: start: 20090114, end: 20091112
  2. PERINDOPRIL ERBUMINE [Concomitant]
     Route: 065
     Dates: start: 20050101, end: 20100201
  3. MELPHALAN HYDROCHLORIDE [Concomitant]
     Indication: MULTIPLE MYELOMA
     Route: 065
  4. ASPIRIN [Concomitant]
     Route: 065
     Dates: start: 20050101, end: 20100201
  5. PRAVASTATIN [Concomitant]
     Route: 065
     Dates: end: 20100201
  6. REVLIMID [Suspect]
     Indication: MULTIPLE MYELOMA
     Dosage: 25 MILLIGRAM
     Route: 048
     Dates: start: 20090114, end: 20091112
  7. LANTUS [Concomitant]
     Route: 065
     Dates: start: 20040101, end: 20100201
  8. NOVORAPID [Concomitant]
     Route: 065
     Dates: start: 20040101, end: 20100201
  9. PREDNISONE [Concomitant]
     Indication: MULTIPLE MYELOMA
     Route: 065
  10. BORTEZOMIB [Concomitant]
     Indication: MULTIPLE MYELOMA
     Route: 065

REACTIONS (2)
  - NEUROENDOCRINE TUMOUR [None]
  - MULTIPLE MYELOMA [None]
